FAERS Safety Report 5283788-X (Version None)
Quarter: 2007Q2

REPORT INFORMATION
  Report Type: 
  Country: None (occurrence: None)
  Receive Date: 20070402
  Receipt Date: 20070329
  Transmission Date: 20071010
  Serious: Yes (Other)
  Sender: FDA-Public Use
  Company Number: NL-ROXANE LABORATORIES, INC-2007-DE-01853GD

PATIENT
  Age: 12 Year
  Sex: Female

DRUGS (1)
  1. PREDNISONE [Suspect]
     Indication: BRONCHOPULMONARY ASPERGILLOSIS ALLERGIC
     Dosage: STARTED AT 50 MG, TAPERED AND REDUCED BELOW 10 - 15 MG

REACTIONS (4)
  - GROWTH RETARDATION [None]
  - HYPERTENSION [None]
  - OBESITY [None]
  - OSTEOPOROSIS [None]
